FAERS Safety Report 4738385-9 (Version None)
Quarter: 2005Q3

REPORT INFORMATION
  Report Type: 
  Country: None (occurrence: None)
  Receive Date: 20050728
  Receipt Date: 20050509
  Transmission Date: 20060218
  Serious: No
  Sender: FDA-Public Use
  Company Number: 200513249US

PATIENT
  Age: 76 Year
  Sex: Female
  Weight: 68 kg

DRUGS (3)
  1. KETEK [Suspect]
     Indication: BRONCHITIS
     Dates: start: 20050216, end: 20050221
  2. FLUTICASONE PROPIONATE [Concomitant]
  3. SALMETEROL XINAFOATE (ADVAIR) [Concomitant]

REACTIONS (1)
  - URTICARIA GENERALISED [None]
